FAERS Safety Report 5537043-0 (Version None)
Quarter: 2007Q4

REPORT INFORMATION
  Report Type: 
  Country: None (occurrence: None)
  Receive Date: 20071204
  Receipt Date: 20071119
  Transmission Date: 20080405
  Serious: Yes (Life-Threatening)
  Sender: FDA-Public Use
  Company Number: 100#03#2007-04903

PATIENT
  Age: 73 Year
  Sex: Male

DRUGS (5)
  1. CITALOPRAM HYDROBROMIDE [Suspect]
     Indication: DEPRESSION
     Dosage: 20 MG PER DAY
     Route: 048
     Dates: start: 20071016, end: 20071025
  2. ACETYLSALICYLIC ACID SRT [Concomitant]
  3. GLICLAZIDE (GLICLAZIDE) (GLICLAZIDE) [Concomitant]
  4. METFORMIN (METFORMIN) (METFORMIN) [Concomitant]
  5. SIMVASTATIN [Concomitant]

REACTIONS (1)
  - DUODENAL ULCER PERFORATION [None]
